FAERS Safety Report 4999617-5 (Version None)
Quarter: 2006Q2

REPORT INFORMATION
  Report Type: 
  Country: None (occurrence: None)
  Receive Date: 20060511
  Receipt Date: 20060210
  Transmission Date: 20061013
  Serious: Yes (Death)
  Sender: FDA-Public Use
  Company Number: PHBS2006NO02369

PATIENT
  Age: 83 Year
  Sex: Male

DRUGS (3)
  1. EXELON [Suspect]
     Indication: DEMENTIA ALZHEIMER'S TYPE
     Dosage: 1.5 MG, BID
     Route: 065
     Dates: start: 20050428, end: 20050531
  2. EXELON [Suspect]
     Dosage: 1.5 MG, BID
     Route: 065
     Dates: start: 20011022, end: 20050307
  3. CABASER [Suspect]
     Indication: PARKINSON'S DISEASE
     Dosage: 1.5 MG, BID
     Route: 065
     Dates: start: 20050415

REACTIONS (4)
  - AGGRESSION [None]
  - DEATH [None]
  - LIBIDO INCREASED [None]
  - PARKINSONISM [None]
